FAERS Safety Report 13016825 (Version 2)
Quarter: 2017Q2

REPORT INFORMATION
  Report Type: Spontaneous
  Country: US (occurrence: US)
  Receive Date: 20161212
  Receipt Date: 20170406
  Transmission Date: 20170830
  Serious: Yes (Other)
  Sender: FDA-Public Use
  Company Number: US-TEVA-718756ACC

PATIENT
  Sex: Female

DRUGS (4)
  1. PARAGARD T 380A [Suspect]
     Active Substance: COPPER
     Indication: CONTRACEPTION
     Route: 065
     Dates: start: 201608
  2. MULTIVITAMIN [Concomitant]
     Active Substance: VITAMINS
  3. SYNTHROID 50 [Concomitant]
  4. BIOTIN [Concomitant]
     Active Substance: BIOTIN

REACTIONS (4)
  - Device dislocation [Unknown]
  - Abortion spontaneous [Unknown]
  - Pregnancy on contraceptive [Unknown]
  - Exposure during pregnancy [Unknown]
